FAERS Safety Report 13660902 (Version 1)
Quarter: 2017Q2

REPORT INFORMATION
  Report Type: Spontaneous
  Country: FR (occurrence: FR)
  Receive Date: 20170616
  Receipt Date: 20170616
  Transmission Date: 20170830
  Serious: Yes (Hospitalization, Other)
  Sender: FDA-Public Use
  Company Number: FR-BAYER-2017-109436

PATIENT
  Age: 26 Year
  Sex: Female

DRUGS (1)
  1. JAYDESS [Suspect]
     Active Substance: LEVONORGESTREL
     Dosage: 14 MCG/24HR, CONT
     Route: 015
     Dates: start: 2016, end: 2017

REACTIONS (8)
  - Peritoneal haemorrhage [None]
  - Drug ineffective [None]
  - Blood pressure abnormal [None]
  - Pelvic pain [None]
  - Anaemia postoperative [None]
  - Syncope [None]
  - Ectopic pregnancy with contraceptive device [None]
  - Pelvic fluid collection [None]
